FAERS Safety Report 9671933 (Version 1)
Quarter: 2013Q4

REPORT INFORMATION
  Report Type: Spontaneous
  Country: US (occurrence: US)
  Receive Date: 20131106
  Receipt Date: 20131106
  Transmission Date: 20140711
  Serious: Yes (Hospitalization)
  Sender: FDA-Public Use
  Company Number: US-SHIRE-ALL1-2013-07399

PATIENT
  Age: 53 Year
  Sex: Male

DRUGS (1)
  1. PENTASA [Suspect]
     Indication: PRODUCT USED FOR UNKNOWN INDICATION
     Dosage: 1000 MG (FOUR 250 MG CAPSULES), 2X/DAY:BID
     Route: 048

REACTIONS (2)
  - Spinal fracture [Unknown]
  - Crohn^s disease [Unknown]
